FAERS Safety Report 7313814-5 (Version None)
Quarter: 2011Q1

REPORT INFORMATION
  Report Type: 
  Country: None (occurrence: None)
  Receive Date: 20110225
  Receipt Date: 20110221
  Transmission Date: 20110831
  Serious: Yes (Other)
  Sender: FDA-Public Use
  Company Number: US-PFIZER INC-2011038000

PATIENT
  Sex: Male
  Weight: 132 kg

DRUGS (2)
  1. XALATAN [Suspect]
     Indication: GLAUCOMA
     Dosage: 1 DROP IN LEFT EYE
  2. TRUSOPT [Suspect]
     Indication: GLAUCOMA
     Dosage: 1 DROP IN LEFT EYE

REACTIONS (2)
  - BLOOD PRESSURE ABNORMAL [None]
  - INTRAOCULAR PRESSURE INCREASED [None]
